FAERS Safety Report 5457406-1 (Version None)
Quarter: 2007Q3

REPORT INFORMATION
  Report Type: 
  Country: None (occurrence: None)
  Receive Date: 20070918
  Receipt Date: 20070228
  Transmission Date: 20080115
  Serious: Yes (Other)
  Sender: FDA-Public Use
  Company Number: US-ASTRAZENECA-2007UW04038

PATIENT
  Sex: Female
  Weight: 90 kg

DRUGS (5)
  1. SEROQUEL [Suspect]
     Indication: ANXIETY
     Route: 048
  2. SEROQUEL [Suspect]
     Indication: BIPOLAR DISORDER
     Route: 048
  3. SOLIAN [Concomitant]
     Dates: start: 20000101, end: 20050101
  4. STELAZINE [Concomitant]
     Dates: start: 19700101, end: 19770101
  5. THORAZINE [Concomitant]
     Dates: start: 19700101, end: 19780101

REACTIONS (3)
  - DIABETES MELLITUS [None]
  - KETOACIDOSIS [None]
  - NEUROLEPTIC MALIGNANT SYNDROME [None]
